FAERS Safety Report 6274632-2 (Version None)
Quarter: 2009Q3

REPORT INFORMATION
  Report Type: 
  Country: None (occurrence: None)
  Receive Date: 20090717
  Receipt Date: 20090706
  Transmission Date: 20100115
  Serious: Yes (Hospitalization, Disabling, Other)
  Sender: FDA-Public Use
  Company Number: 2009AL001742

PATIENT
  Age: 51 Year
  Sex: Female
  Weight: 52.6173 kg

DRUGS (17)
  1. METOCLOPRAMIDE [Suspect]
     Indication: ABDOMINAL PAIN
     Dosage: 10 MG; TID; PO
     Route: 048
     Dates: start: 20030101, end: 20070201
  2. METOCLOPRAMIDE [Suspect]
     Indication: NAUSEA
     Dosage: 10 MG; TID; PO
     Route: 048
     Dates: start: 20030101, end: 20070201
  3. METOCLOPRAMIDE [Suspect]
     Indication: VOMITING
     Dosage: 10 MG; TID; PO
     Route: 048
     Dates: start: 20030101, end: 20070201
  4. HYDROCHLOROTHIAZIDE [Concomitant]
  5. PREMARIN [Concomitant]
  6. NEXIUM [Concomitant]
  7. CEPHALEXIN [Concomitant]
  8. ALPRAZOLAM [Concomitant]
  9. ACETAMINOPHEN AND CODEINE PHOSPHATE [Concomitant]
  10. HYDROCODONE BITARTRATE + ACETAMINOPHEN [Concomitant]
  11. DICYCLOMIDE [Concomitant]
  12. PROMETHAZINE [Concomitant]
  13. CEPHALEXIN [Concomitant]
  14. NEURONTIN [Concomitant]
  15. PHENERGAN [Concomitant]
  16. COMPAZINE [Concomitant]
  17. TIGAN [Concomitant]

REACTIONS (40)
  - ABDOMINAL ADHESIONS [None]
  - ABDOMINAL HERNIA [None]
  - ABDOMINAL PAIN UPPER [None]
  - AGITATION [None]
  - AKATHISIA [None]
  - COGNITIVE DISORDER [None]
  - CONFUSIONAL STATE [None]
  - CONSTIPATION [None]
  - COORDINATION ABNORMAL [None]
  - CRYING [None]
  - DECREASED APPETITE [None]
  - DEFORMITY [None]
  - DEHYDRATION [None]
  - DEPRESSION [None]
  - DISEASE RECURRENCE [None]
  - DISINHIBITION [None]
  - DYSPHEMIA [None]
  - EXCESSIVE EYE BLINKING [None]
  - EXTRAPYRAMIDAL DISORDER [None]
  - GASTROINTESTINAL DISORDER [None]
  - HEADACHE [None]
  - INJURY [None]
  - LIBIDO DECREASED [None]
  - MEMORY IMPAIRMENT [None]
  - MENTAL DISORDER [None]
  - MENTAL IMPAIRMENT [None]
  - MULTIPLE INJURIES [None]
  - MUSCLE SPASMS [None]
  - NAUSEA [None]
  - NERVOUS SYSTEM DISORDER [None]
  - NEUROLOGICAL SYMPTOM [None]
  - PAIN [None]
  - PROTRUSION TONGUE [None]
  - RESTLESSNESS [None]
  - RETCHING [None]
  - SEXUAL DYSFUNCTION [None]
  - STRESS [None]
  - TARDIVE DYSKINESIA [None]
  - URINARY TRACT INFECTION [None]
  - WEIGHT DECREASED [None]
